FAERS Safety Report 8006307-3 (Version None)
Quarter: 2011Q4

REPORT INFORMATION
  Report Type: 
  Country: None (occurrence: None)
  Receive Date: 20111226
  Receipt Date: 20111219
  Transmission Date: 20120403
  Serious: Yes (Hospitalization, Disabling)
  Sender: FDA-Public Use
  Company Number: PHEH2011US009288

PATIENT
  Sex: Female

DRUGS (6)
  1. EXJADE [Suspect]
     Dosage: 1000 MG, QD
     Route: 048
  2. LASIX [Concomitant]
     Dosage: 40 MG, DAILY
     Route: 048
  3. SIMVASTATIN [Concomitant]
     Dosage: 10 MG, EVERY 9 HOURS
  4. SYNTHROID [Concomitant]
     Dosage: 10 UG, DAILY
     Route: 048
  5. ENALAPRIL MALEATE [Concomitant]
     Dosage: 20 MG, BID
     Route: 048
  6. GABAPENTIN [Concomitant]
     Dosage: 300 MG, TID
     Route: 048

REACTIONS (2)
  - HIP FRACTURE [None]
  - FALL [None]
